FAERS Safety Report 6618282-4 (Version None)
Quarter: 2010Q1

REPORT INFORMATION
  Report Type: 
  Country: None (occurrence: None)
  Receive Date: 20100308
  Receipt Date: 20100301
  Transmission Date: 20100710
  Serious: Yes (Hospitalization)
  Sender: FDA-Public Use
  Company Number: JP-JNJFOC-20100110354

PATIENT
  Sex: Male
  Weight: 56 kg

DRUGS (2)
  1. ITRACONAZOLE [Suspect]
     Indication: RESPIRATORY TRACT INFECTION
     Route: 048
  2. MUCOSOLVAN [Concomitant]
     Indication: RESPIRATORY TRACT INFECTION
     Route: 048

REACTIONS (4)
  - COR PULMONALE [None]
  - INTERSTITIAL LUNG DISEASE [None]
  - PULMONARY HYPERTENSION [None]
  - TRICUSPID VALVE INCOMPETENCE [None]
